FAERS Safety Report 5425997-2 (Version None)
Quarter: 2007Q3

REPORT INFORMATION
  Report Type: 
  Country: None (occurrence: None)
  Receive Date: 20070827
  Receipt Date: 20070820
  Transmission Date: 20080115
  Serious: Yes (Other)
  Sender: FDA-Public Use
  Company Number: HQWYE156120JUL07

PATIENT
  Sex: Female

DRUGS (2)
  1. HYPEN [Suspect]
     Indication: ARTHRALGIA
     Route: 048
     Dates: start: 20070618, end: 20070625
  2. HYPEN [Suspect]
     Route: 048
     Dates: start: 20070714, end: 20070714

REACTIONS (3)
  - EYELID OEDEMA [None]
  - RASH [None]
  - SWELLING FACE [None]
